FAERS Safety Report 20088313 (Version 2)
Quarter: 2021Q4

REPORT INFORMATION
  Report Type: Spontaneous
  Country: US (occurrence: US)
  Receive Date: 20211118
  Receipt Date: 20211202
  Transmission Date: 20220304
  Serious: No
  Sender: FDA-Public Use
  Company Number: US-JNJFOC-20211134846

PATIENT
  Age: 76 Year
  Sex: Male

DRUGS (1)
  1. DARZALEX [Suspect]
     Active Substance: DARATUMUMAB
     Indication: Product used for unknown indication
     Route: 065

REACTIONS (3)
  - Throat irritation [Unknown]
  - Cough [Unknown]
  - Infusion related reaction [Unknown]
